FAERS Safety Report 7653842-3 (Version None)
Quarter: 2011Q3

REPORT INFORMATION
  Report Type: 
  Country: None (occurrence: None)
  Receive Date: 20110727
  Receipt Date: 20100625
  Transmission Date: 20111222
  Serious: Yes (Hospitalization)
  Sender: FDA-Public Use
  Company Number: OMPQ-PR-1006S-0416

PATIENT
  Age: 49 Year
  Sex: Female

DRUGS (1)
  1. OMNIPAQUE 140 [Suspect]
     Indication: PRODUCT USED FOR UNKNOWN INDICATION
     Dosage: SINGLE DOSE
     Dates: start: 20100616, end: 20100616

REACTIONS (4)
  - ANAPHYLACTIC REACTION [None]
  - SWELLING [None]
  - RASH [None]
  - DYSPNOEA [None]
